FAERS Safety Report 22517339 (Version 1)
Quarter: 2023Q2

REPORT INFORMATION
  Report Type: Spontaneous
  Country: CA (occurrence: CA)
  Receive Date: 20230603
  Receipt Date: 20230603
  Transmission Date: 20230721
  Serious: Yes (Other)
  Sender: FDA-Public Use
  Company Number: None

PATIENT
  Sex: Male

DRUGS (7)
  1. AMLODIPINE [Suspect]
     Active Substance: AMLODIPINE BESYLATE
     Indication: Prinzmetal angina
  2. APIXABAN [Suspect]
     Active Substance: APIXABAN
     Indication: Prinzmetal angina
  3. BOSENTAN [Suspect]
     Active Substance: BOSENTAN
     Indication: Prinzmetal angina
  4. DILTIAZEM [Suspect]
     Active Substance: DILTIAZEM
     Indication: Prinzmetal angina
  5. ISOSORBIDE MONONITRATE [Suspect]
     Active Substance: ISOSORBIDE MONONITRATE
     Indication: Prinzmetal angina
  6. MOMETASONE [Suspect]
     Active Substance: MOMETASONE
     Indication: Prinzmetal angina
     Dosage: SPRAY, METERED DOSE
  7. PREDNISONE [Suspect]
     Active Substance: PREDNISONE
     Indication: Prinzmetal angina

REACTIONS (3)
  - Coronary artery disease [Unknown]
  - Hypersensitivity [Unknown]
  - Mast cell activation syndrome [Unknown]
